FAERS Safety Report 7633981-3 (Version None)
Quarter: 2011Q3

REPORT INFORMATION
  Report Type: 
  Country: None (occurrence: None)
  Receive Date: 20110725
  Receipt Date: 20110718
  Transmission Date: 20111222
  Serious: Yes (Hospitalization, Other)
  Sender: FDA-Public Use
  Company Number: US-PFIZER INC-2011039624

PATIENT
  Sex: Male

DRUGS (23)
  1. COREG [Concomitant]
     Dosage: UNK
     Dates: start: 19960101
  2. CHANTIX [Suspect]
     Indication: SMOKING CESSATION THERAPY
     Dosage: 0.5 MG/1 MG
     Dates: start: 20070509, end: 20070901
  3. CHANTIX [Suspect]
     Dosage: 0.5 MG/1 MG
     Dates: start: 20100312, end: 20100728
  4. VASOTEC [Concomitant]
     Dosage: UNK
     Dates: start: 19960101, end: 20100101
  5. PREDNISONE [Concomitant]
     Indication: ANTIINFLAMMATORY THERAPY
  6. METHYLPREDNISOLONE [Concomitant]
     Indication: PNEUMONIA
     Dosage: UNK
     Dates: start: 20030101, end: 20100101
  7. DIGOXIN [Concomitant]
     Dosage: UNK
     Dates: start: 20010101, end: 20100810
  8. NYSTATIN [Concomitant]
     Indication: FUNGAL INFECTION
     Dosage: UNK
     Dates: start: 20100621, end: 20100701
  9. COUMADIN [Concomitant]
     Dosage: UNK
     Dates: start: 20010101
  10. ZOCOR [Concomitant]
     Indication: BLOOD CHOLESTEROL INCREASED
     Dosage: UNK
     Dates: start: 20050101
  11. REGLAN [Concomitant]
     Indication: IMPAIRED GASTRIC EMPTYING
     Dosage: UNK
     Dates: start: 20090101
  12. SPIRONOLACTONE [Concomitant]
     Indication: OEDEMA
     Dosage: UNK
     Dates: start: 20090916, end: 20100901
  13. HUMALOG MIX PEN [Concomitant]
     Indication: DIABETES MELLITUS
     Dosage: UNK
     Dates: start: 20080101
  14. METHYLPREDNISOLONE [Concomitant]
     Indication: ANTIINFLAMMATORY THERAPY
  15. HUMALOG [Concomitant]
     Indication: DIABETES MELLITUS
     Dosage: UNK
     Dates: start: 20040101
  16. NEXIUM [Concomitant]
     Indication: IMPAIRED GASTRIC EMPTYING
     Dosage: UNK
     Dates: start: 20090101
  17. LASIX [Concomitant]
     Indication: OEDEMA
     Dosage: UNK
     Dates: start: 19960101
  18. OXYCONTIN [Concomitant]
     Indication: SCIATICA
     Dosage: UNK
     Dates: start: 20060101
  19. AMBIEN [Concomitant]
     Indication: INSOMNIA
     Dosage: UNK
     Dates: start: 20060601
  20. DOXYCYCLINE [Concomitant]
     Indication: BACTERIAL INFECTION
     Dosage: UNK
     Dates: start: 20100627, end: 20100701
  21. AMIODARONE [Concomitant]
     Dosage: UNK
     Dates: start: 20030101
  22. HUMALOG NPL [Concomitant]
     Indication: DIABETES MELLITUS
     Dosage: UNK
     Dates: start: 20040101
  23. PREDNISONE [Concomitant]
     Indication: PNEUMONIA
     Dosage: UNK
     Dates: start: 20030101, end: 20100101

REACTIONS (6)
  - MAJOR DEPRESSION [None]
  - INTENTIONAL OVERDOSE [None]
  - ANXIETY [None]
  - SUICIDAL IDEATION [None]
  - SUICIDE ATTEMPT [None]
  - THROAT TIGHTNESS [None]
